FAERS Safety Report 18281920 (Version 1)
Quarter: 2020Q3

REPORT INFORMATION
  Report Type: Spontaneous
  Country: US (occurrence: US)
  Receive Date: 20200917
  Receipt Date: 20200917
  Transmission Date: 20201103
  Serious: Yes (Death)
  Sender: FDA-Public Use
  Company Number: None

PATIENT
  Age: 81 Year
  Sex: Female

DRUGS (2)
  1. CHOLESTYRAM [Concomitant]
     Active Substance: CHOLESTYRAMINE
  2. ADCIRCA [Suspect]
     Active Substance: TADALAFIL
     Route: 048
     Dates: start: 20180115, end: 20200904

REACTIONS (1)
  - Death [None]

NARRATIVE: CASE EVENT DATE: 20200904
